FAERS Safety Report 5046496-6 (Version None)
Quarter: 2006Q2

REPORT INFORMATION
  Report Type: 
  Country: None (occurrence: None)
  Receive Date: 20060629
  Receipt Date: 20060619
  Transmission Date: 20061013
  Serious: Yes (Hospitalization)
  Sender: FDA-Public Use
  Company Number: 2006-01504

PATIENT
  Age: 68 Year
  Sex: Female
  Weight: 98.3 kg

DRUGS (2)
  1. VELCADE [Suspect]
     Indication: MALIGNANT MELANOMA
     Dosage: 1.60 MG/M2, IV BOLUS
     Route: 040
     Dates: start: 20060411, end: 20060612
  2. DECARBAZINE (DECARBAZINE) [Suspect]
     Indication: MALIGNANT MELANOMA
     Dosage: 330.00 MG/M2, IV DRIP
     Route: 041
     Dates: end: 20060612

REACTIONS (6)
  - ACTIVITIES OF DAILY LIVING IMPAIRED [None]
  - ATRIAL FIBRILLATION [None]
  - BODY TEMPERATURE INCREASED [None]
  - FATIGUE [None]
  - HYPOKALAEMIA [None]
  - HYPONATRAEMIA [None]
